FAERS Safety Report 5709864-2 (Version None)
Quarter: 2008Q2

REPORT INFORMATION
  Report Type: 
  Country: None (occurrence: None)
  Receive Date: 20080418
  Receipt Date: 20070206
  Transmission Date: 20081010
  Serious: No
  Sender: FDA-Public Use
  Company Number: US-ASTRAZENECA-2007UW02535

PATIENT
  Age: 70 Year
  Sex: Female
  Weight: 74.8 kg

DRUGS (5)
  1. METOPROLOL SUCCINATE [Suspect]
     Indication: HYPERTENSION
     Route: 048
     Dates: start: 20070112, end: 20070201
  2. DIOVAN [Concomitant]
     Indication: HYPERTENSION
  3. ASPIRIN [Concomitant]
  4. TOPROL-XL [Concomitant]
     Indication: HYPERTENSION
     Route: 048
     Dates: start: 20060101
  5. TOPROL-XL [Concomitant]
     Route: 048
     Dates: start: 20070201

REACTIONS (4)
  - BLOOD PRESSURE INCREASED [None]
  - HEART RATE INCREASED [None]
  - ILL-DEFINED DISORDER [None]
  - MALAISE [None]
